FAERS Safety Report 14349701 (Version 1)
Quarter: 2018Q1

REPORT INFORMATION
  Report Type: Spontaneous
  Country: US (occurrence: US)
  Receive Date: 20180103
  Receipt Date: 20180103
  Transmission Date: 20180509
  Serious: Yes (Hospitalization)
  Sender: FDA-Public Use
  Company Number: None

PATIENT
  Age: 73 Year
  Sex: Female
  Weight: 84.4 kg

DRUGS (1)
  1. MAXIPIME [Suspect]
     Active Substance: CEFEPIME HYDROCHLORIDE

REACTIONS (3)
  - Abdominal pain [None]
  - Flank pain [None]
  - Flushing [None]

NARRATIVE: CASE EVENT DATE: 20171227
